FAERS Safety Report 5745468-3 (Version None)
Quarter: 2008Q2

REPORT INFORMATION
  Report Type: 
  Country: None (occurrence: None)
  Receive Date: 20080519
  Receipt Date: 20080311
  Transmission Date: 20081010
  Serious: No
  Sender: FDA-Public Use
  Company Number: TPA2008A00087

PATIENT
  Age: 48 Year
  Sex: Female
  Weight: 58.9676 kg

DRUGS (2)
  1. ROZEREM [Suspect]
     Indication: INSOMNIA
     Dosage: 8 MG, ONCE AT HS, PER ORAL
     Route: 048
     Dates: start: 20080101
  2. HRT (HORMONES AND RELATED AGENTS) [Concomitant]

REACTIONS (2)
  - CHEST DISCOMFORT [None]
  - SLEEP TERROR [None]
